FAERS Safety Report 4479729-5 (Version None)
Quarter: 2004Q4

REPORT INFORMATION
  Report Type: 
  Country: None (occurrence: None)
  Receive Date: 20041020
  Receipt Date: 20041015
  Transmission Date: 20050328
  Serious: Yes (Hospitalization)
  Sender: FDA-Public Use
  Company Number: PHBS2004JP13800

PATIENT
  Age: 70 Year
  Sex: Male
  Weight: 69 kg

DRUGS (1)
  1. VOLTAREN-XR [Suspect]
     Indication: SPONDYLOSIS
     Dosage: 75 MG/DAY
     Route: 048
     Dates: start: 20040706

REACTIONS (4)
  - DRUG ERUPTION [None]
  - LOSS OF CONSCIOUSNESS [None]
  - SHOCK [None]
  - VOMITING [None]
